FAERS Safety Report 4602420-9 (Version None)
Quarter: 2005Q1

REPORT INFORMATION
  Report Type: 
  Country: None (occurrence: None)
  Receive Date: 20050307
  Receipt Date: 20050224
  Transmission Date: 20050727
  Serious: Yes (Hospitalization, Other)
  Sender: FDA-Public Use
  Company Number: 200510624BCC

PATIENT
  Age: 84 Year
  Sex: Male
  Weight: 67.1324 kg

DRUGS (3)
  1. ASPIRIN [Suspect]
     Indication: PROPHYLAXIS
     Dosage: 325 MG, QD, ORAL
     Route: 048
     Dates: start: 19990101, end: 20040101
  2. ALEVE [Suspect]
     Dosage: NI, PRN, NI
  3. ALEVE [Concomitant]

REACTIONS (4)
  - DIFFICULTY IN WALKING [None]
  - GASTRIC INFECTION [None]
  - GASTRIC ULCER HAEMORRHAGE [None]
  - PHARMACEUTICAL PRODUCT COMPLAINT [None]
